FAERS Safety Report 6196041-7 (Version None)
Quarter: 2009Q2

REPORT INFORMATION
  Report Type: 
  Country: None (occurrence: None)
  Receive Date: 20090520
  Receipt Date: 20090511
  Transmission Date: 20091009
  Serious: Yes (Other)
  Sender: FDA-Public Use
  Company Number: US-PFIZER INC-2009211845

PATIENT

DRUGS (2)
  1. SERTRALINE HCL [Suspect]
  2. ANTINEOPLASTIC AGENTS [Suspect]

REACTIONS (3)
  - DRUG INTERACTION [None]
  - LEUKAEMIA [None]
  - OBSESSIVE-COMPULSIVE DISORDER [None]
